FAERS Safety Report 23401082 (Version 1)
Quarter: 2024Q1

REPORT INFORMATION
  Report Type: Spontaneous
  Country: JP (occurrence: JP)
  Receive Date: 20240115
  Receipt Date: 20240115
  Transmission Date: 20240409
  Serious: Yes (Hospitalization, Other)
  Sender: FDA-Public Use
  Company Number: JP-KYOWAKIRIN-2023KK019757

PATIENT
  Age: 9 Decade

DRUGS (1)
  1. DARBEPOETIN ALFA [Suspect]
     Active Substance: DARBEPOETIN ALFA
     Indication: Nephrogenic anaemia
     Dosage: 120 MICROGRAM
     Route: 058
     Dates: end: 202303

REACTIONS (3)
  - Cardiac failure [Recovered/Resolved]
  - Hypothyroidism [Recovered/Resolved]
  - Drug ineffective [Unknown]
